FAERS Safety Report 7518409-6 (Version None)
Quarter: 2011Q2

REPORT INFORMATION
  Report Type: 
  Country: None (occurrence: None)
  Receive Date: 20110601
  Receipt Date: 20110601
  Transmission Date: 20111010
  Serious: Yes (Other)
  Sender: FDA-Public Use
  Company Number: None

PATIENT
  Age: 41 Year
  Sex: Female
  Weight: 56.6996 kg

DRUGS (1)
  1. LEVAQUIN [Suspect]
     Dosage: 500 MG 2-3 TIMES A DAY IV DRIP
     Route: 041
     Dates: start: 20110520, end: 20110524

REACTIONS (6)
  - PAIN IN EXTREMITY [None]
  - BURNING SENSATION [None]
  - OEDEMA PERIPHERAL [None]
  - DIZZINESS [None]
  - PARAESTHESIA [None]
  - BLOOD POTASSIUM DECREASED [None]
